FAERS Safety Report 8420785-7 (Version None)
Quarter: 2012Q2

REPORT INFORMATION
  Report Type: 
  Country: None (occurrence: None)
  Receive Date: 20120608
  Receipt Date: 20120604
  Transmission Date: 20120825
  Serious: No
  Sender: FDA-Public Use
  Company Number: US-PFIZER INC-2012016514

PATIENT
  Sex: Female

DRUGS (3)
  1. LYRICA [Suspect]
     Dosage: 100 MG, EVERY 8 HOURS
     Route: 048
  2. LIPITOR [Suspect]
     Dosage: UNK
  3. DETROL LA [Suspect]
     Dosage: UNK

REACTIONS (2)
  - PAIN [None]
  - FIBROMYALGIA [None]
